FAERS Safety Report 10562208 (Version 1)
Quarter: 2014Q4

REPORT INFORMATION
  Report Type: Spontaneous
  Country: NO (occurrence: None)
  Receive Date: 20141031
  Receipt Date: 20141031
  Transmission Date: 20150529
  Serious: Yes (Other)
  Sender: FDA-Public Use
  Company Number: FK201404651

PATIENT
  Age: 44 Year
  Sex: Male

DRUGS (2)
  1. CEFOTAXIME [Suspect]
     Active Substance: CEFOTAXIME\CEFOTAXIME SODIUM
     Indication: PERITONITIS
  2. MEROPENEM (MANUFACTURER UNKNOWN) (MEROPENEM) (MEROPENEM) [Suspect]
     Active Substance: MEROPENEM
     Indication: PERITONITIS

REACTIONS (1)
  - Enterococcal infection [None]
